FAERS Safety Report 7743430-2 (Version None)
Quarter: 2011Q3

REPORT INFORMATION
  Report Type: 
  Country: None (occurrence: None)
  Receive Date: 20110912
  Receipt Date: 20110905
  Transmission Date: 20111222
  Serious: Yes (Hospitalization)
  Sender: FDA-Public Use
  Company Number: PHHY2011NL71543

PATIENT
  Sex: Male

DRUGS (4)
  1. CHEMOTHERAPEUTICS NOS [Concomitant]
  2. ZOMETA [Suspect]
     Indication: PROSTATE CANCER METASTATIC
     Dosage: 4 MG, PER 5 ML ONCE PER 28 DAYS
     Dates: start: 20101130
  3. ZOMETA [Suspect]
     Dosage: 4 MG, PER 5 ML
     Dates: start: 20110712
  4. ZOMETA [Suspect]
     Dosage: 4 MG, PER 5 ML
     Dates: start: 20110809

REACTIONS (5)
  - ABDOMINAL INFECTION [None]
  - HYPOPHAGIA [None]
  - DEHYDRATION [None]
  - ABDOMINAL DISTENSION [None]
  - DIARRHOEA [None]
